FAERS Safety Report 4931310-7 (Version None)
Quarter: 2006Q1

REPORT INFORMATION
  Report Type: 
  Country: None (occurrence: None)
  Receive Date: 20060302
  Receipt Date: 20050930
  Transmission Date: 20060701
  Serious: Yes (Death, Hospitalization, Other)
  Sender: FDA-Public Use
  Company Number: PR-MERCK-0510USA00851

PATIENT
  Age: 45 Year
  Sex: Male
  Weight: 86 kg

DRUGS (2)
  1. VIOXX [Suspect]
     Indication: ARTHRITIS
     Route: 048
     Dates: start: 19990801, end: 20010101
  2. VIOXX [Suspect]
     Route: 048
     Dates: start: 19990801, end: 20010101

REACTIONS (11)
  - ANGINA PECTORIS [None]
  - ANXIETY [None]
  - ARRHYTHMIA [None]
  - CARDIAC DISORDER [None]
  - CEREBROVASCULAR ACCIDENT [None]
  - DEPRESSION [None]
  - MYOCARDIAL INFARCTION [None]
  - ORGAN FAILURE [None]
  - OTITIS MEDIA CHRONIC [None]
  - PULMONARY EMBOLISM [None]
  - THROMBOSIS [None]
